FAERS Safety Report 8543645-X (Version None)
Quarter: 2012Q3

REPORT INFORMATION
  Report Type: 
  Country: None (occurrence: None)
  Receive Date: 20120727
  Receipt Date: 20090806
  Transmission Date: 20120928
  Serious: Yes (Other)
  Sender: FDA-Public Use
  Company Number: CO-PFIZER INC-2012180179

PATIENT
  Age: 52 Year
  Sex: Male

DRUGS (3)
  1. CAPTOPRIL [Concomitant]
     Dosage: 25 MG, 1X/DAY
  2. LIPITOR [Suspect]
     Dosage: 20 MG EVERY 24 HOURS
  3. LOVASTATIN [Concomitant]
     Dosage: 20 MG, 1X/DAY

REACTIONS (2)
  - RENAL FAILURE CHRONIC [None]
  - ANGINA UNSTABLE [None]
